FAERS Safety Report 11912719 (Version 1)
Quarter: 2016Q1

REPORT INFORMATION
  Report Type: Spontaneous
  Country: US (occurrence: None)
  Receive Date: 20160112
  Receipt Date: 20160112
  Transmission Date: 20160526
  Serious: No
  Sender: FDA-Public Use
  Company Number: None

PATIENT
  Age: 18 Year
  Sex: Male
  Weight: 65.77 kg

DRUGS (1)
  1. SOLODYN [Suspect]
     Active Substance: MINOCYCLINE HYDROCHLORIDE
     Indication: ACNE
     Dosage: 1 PILL
     Route: 048
     Dates: start: 20150529, end: 20151220

REACTIONS (12)
  - Gait disturbance [None]
  - Procedural pain [None]
  - Back pain [None]
  - Educational problem [None]
  - Antinuclear antibody positive [None]
  - Pain in extremity [None]
  - Mobility decreased [None]
  - Red blood cell sedimentation rate increased [None]
  - Musculoskeletal stiffness [None]
  - Activities of daily living impaired [None]
  - Asthenia [None]
  - C-reactive protein increased [None]
